FAERS Safety Report 21934759 (Version 3)
Quarter: 2023Q2

REPORT INFORMATION
  Report Type: Spontaneous
  Country: US (occurrence: US)
  Receive Date: 20230201
  Receipt Date: 20230406
  Transmission Date: 20230722
  Serious: Yes (Other)
  Sender: FDA-Public Use
  Company Number: US-BRISTOL-MYERS SQUIBB COMPANY-2023-012421

PATIENT
  Age: 78 Year
  Sex: Female

DRUGS (2)
  1. SPRYCEL [Suspect]
     Active Substance: DASATINIB
     Indication: Chronic myeloid leukaemia
     Dosage: EVERY OTHER DAY
     Route: 048
     Dates: start: 202210
  2. SPRYCEL [Suspect]
     Active Substance: DASATINIB
     Route: 048

REACTIONS (5)
  - Atrial fibrillation [Not Recovered/Not Resolved]
  - Retinal haemorrhage [Unknown]
  - Headache [Unknown]
  - Intentional product use issue [Unknown]
  - Nausea [Unknown]
